FAERS Safety Report 24456861 (Version 1)
Quarter: 2024Q4

REPORT INFORMATION
  Report Type: Spontaneous
  Country: US (occurrence: None)
  Receive Date: 20241018
  Receipt Date: 20241018
  Transmission Date: 20250115
  Serious: No
  Sender: ADAMAS PHARMA
  Company Number: US-ADAMAS PHARMA, LLC-2021ADA01481

PATIENT
  Age: 70 Year
  Sex: Female
  Weight: 86.168 kg

DRUGS (16)
  1. GOCOVRI [Suspect]
     Active Substance: AMANTADINE
     Indication: Dyskinesia
     Dosage: 137 MG, 1X/DAY BEFORE BED AT NIGHT
     Route: 048
     Dates: start: 2021, end: 2021
  2. GOCOVRI [Suspect]
     Active Substance: AMANTADINE
     Indication: Parkinson^s disease
     Dosage: 274 MG, 1X/DAY BEFORE BED AT NIGHT
     Route: 048
     Dates: start: 20210514, end: 2021
  3. GOCOVRI [Suspect]
     Active Substance: AMANTADINE
     Dosage: 68.5 MG, 1X/DAY BEFORE BED AT NIGHT
     Route: 048
     Dates: start: 20210625, end: 20240327
  4. ACETAMINOPHEN [Concomitant]
     Active Substance: ACETAMINOPHEN
     Dosage: NOT PROVIDED
  5. CYCLOBENZAPRINE [Concomitant]
     Active Substance: CYCLOBENZAPRINE
     Dosage: NOT PROVIDED
  6. CYCLOBENZAPRINE [Concomitant]
     Active Substance: CYCLOBENZAPRINE
  7. CYCLOBENZAPRINE [Concomitant]
     Active Substance: CYCLOBENZAPRINE
  8. CYCLOBENZAPRINE [Concomitant]
     Active Substance: CYCLOBENZAPRINE
  9. FUROSEMIDE [Concomitant]
     Active Substance: FUROSEMIDE
     Dosage: NOT PROVIDED
  10. HYDROCHLOROTHIAZIDE [Concomitant]
     Active Substance: HYDROCHLOROTHIAZIDE
     Dosage: NOT PROVIDED
  11. IBUPROFEN [Concomitant]
     Active Substance: IBUPROFEN
     Dosage: NOT PROVIDED
  12. LIPITOR [Concomitant]
     Active Substance: ATORVASTATIN CALCIUM
     Dosage: NOT PROVIDED
  13. OXYBUTYNIN [Concomitant]
     Active Substance: OXYBUTYNIN
     Dosage: NOT PROVIDED
  14. PRAMIPEXOLE [Concomitant]
     Active Substance: PRAMIPEXOLE\PRAMIPEXOLE DIHYDROCHLORIDE
     Dosage: NOT PROVIDED
  15. SINEMET [Concomitant]
     Active Substance: CARBIDOPA\LEVODOPA
     Dosage: 10/100
  16. SYNTHROID [Concomitant]
     Active Substance: LEVOTHYROXINE SODIUM
     Dosage: 0.15 MG

REACTIONS (6)
  - Renal impairment [Not Recovered/Not Resolved]
  - Dehydration [Not Recovered/Not Resolved]
  - Fatigue [Recovered/Resolved]
  - Confusional state [Recovered/Resolved]
  - Dry mouth [Not Recovered/Not Resolved]
  - Therapy change [Unknown]

NARRATIVE: CASE EVENT DATE: 20210101
